FAERS Safety Report 12799644 (Version 1)
Quarter: 2016Q3

REPORT INFORMATION
  Report Type: Spontaneous
  Country: US (occurrence: US)
  Receive Date: 20160930
  Receipt Date: 20160930
  Transmission Date: 20161109
  Serious: Yes (Other)
  Sender: FDA-Public Use
  Company Number: US-TEVA-679788USA

PATIENT
  Sex: Female

DRUGS (2)
  1. CHLORDIAZEPOXIDE. [Suspect]
     Active Substance: CHLORDIAZEPOXIDE
     Indication: ANXIETY
     Dosage: 25 MILLIGRAM DAILY;
     Route: 048
  2. CARBAMAZEPINE. [Concomitant]
     Active Substance: CARBAMAZEPINE
     Indication: TRIGEMINAL NEURALGIA
     Route: 065

REACTIONS (8)
  - Sleep disorder [Unknown]
  - Feeling jittery [Unknown]
  - Hyperhidrosis [Unknown]
  - Drug withdrawal syndrome [Unknown]
  - Hot flush [Unknown]
  - Pain [Unknown]
  - Sensory disturbance [Unknown]
  - Tension [Unknown]

NARRATIVE: CASE EVENT DATE: 2016
